FAERS Safety Report 5896342-3 (Version None)
Quarter: 2008Q3

REPORT INFORMATION
  Report Type: 
  Country: None (occurrence: None)
  Receive Date: 20080924
  Receipt Date: 20080212
  Transmission Date: 20090109
  Serious: Yes (Other)
  Sender: FDA-Public Use
  Company Number: US-ASTRAZENECA-2007UW21472

PATIENT
  Age: 10552 Day
  Sex: Male

DRUGS (3)
  1. SEROQUEL [Suspect]
     Indication: ANXIETY
     Dosage: 300MG-1200MG
     Route: 048
     Dates: start: 20060701, end: 20061106
  2. SEROQUEL [Suspect]
     Indication: DEPRESSION
     Dosage: 300MG-1200MG
     Route: 048
     Dates: start: 20060701, end: 20061106
  3. SEROQUEL [Suspect]
     Indication: BIPOLAR DISORDER
     Dosage: 300MG-1200MG
     Route: 048
     Dates: start: 20060701, end: 20061106

REACTIONS (3)
  - DIABETES MELLITUS [None]
  - DIABETIC COMA [None]
  - KETOACIDOSIS [None]
